FAERS Safety Report 4622729-2 (Version None)
Quarter: 2005Q1

REPORT INFORMATION
  Report Type: 
  Country: None (occurrence: None)
  Receive Date: 20050329
  Receipt Date: 20050329
  Transmission Date: 20050727
  Serious: Yes (Hospitalization, Disabling)
  Sender: FDA-Public Use
  Company Number: None

PATIENT
  Age: 27 Year
  Sex: Female
  Weight: 56.246 kg

DRUGS (1)
  1. MIRENA [Suspect]
     Dates: start: 20040810

REACTIONS (17)
  - ABDOMINAL DISTENSION [None]
  - ALOPECIA [None]
  - CHEST PAIN [None]
  - DEPRESSION [None]
  - FEELING ABNORMAL [None]
  - HEADACHE [None]
  - INFECTION [None]
  - IUCD COMPLICATION [None]
  - IUD MIGRATION [None]
  - LETHARGY [None]
  - NERVE INJURY [None]
  - PAIN [None]
  - PELVIC PAIN [None]
  - SCAR [None]
  - UTERINE PERFORATION [None]
  - VOMITING [None]
  - WEIGHT INCREASED [None]
